FAERS Safety Report 20193847 (Version 1)
Quarter: 2021Q4

REPORT INFORMATION
  Report Type: Report from Study
  Country: ES (occurrence: ES)
  Receive Date: 20211216
  Receipt Date: 20211216
  Transmission Date: 20220303
  Serious: Yes (Disabling, Other)
  Sender: FDA-Public Use
  Company Number: ES-THERAMEX-2021000874

PATIENT
  Age: 71 Year
  Sex: Female
  Weight: 59 kg

DRUGS (10)
  1. ACETAMINOPHEN [Suspect]
     Active Substance: ACETAMINOPHEN
     Indication: Pain
     Dosage: EVERY 8 HOURS
     Dates: start: 20210801
  2. TERIPARATIDE [Suspect]
     Active Substance: TERIPARATIDE
     Indication: Osteoporosis
     Dosage: DAILY
     Route: 058
     Dates: start: 20210729
  3. CALCIUM CARBONATE\CHOLECALCIFEROL [Suspect]
     Active Substance: CALCIUM CARBONATE\CHOLECALCIFEROL
     Indication: Osteoporosis
     Dosage: DAILY, YEARS
  4. LORAZEPAM [Suspect]
     Active Substance: LORAZEPAM
     Indication: Sleep disorder
     Dosage: UNK (DAILY ? TABLET, YEARS)
  5. FENTANYL [Suspect]
     Active Substance: FENTANYL
     Indication: Pain
     Dosage: STARTED 3-4 WEEKS AGO AND SHE CONTINUES; 1 PATCH EVERY 3 WEEKS
     Route: 062
     Dates: start: 202108
  6. DEXKETOPROFEN TROMETAMOL [Suspect]
     Active Substance: DEXKETOPROFEN TROMETAMOL
     Indication: Pain
     Dosage: IF THERE^S PAIN
     Route: 048
     Dates: start: 20210801, end: 20210804
  7. DEXKETOPROFEN TROMETAMOL [Suspect]
     Active Substance: DEXKETOPROFEN TROMETAMOL
     Dosage: STRENGTH - ASKU
     Route: 048
     Dates: start: 20210729
  8. TRAMADOL HYDROCHLORIDE [Suspect]
     Active Substance: TRAMADOL HYDROCHLORIDE
     Indication: Pain
     Dosage: DAILY
  9. TRAMADOL HYDROCHLORIDE [Concomitant]
     Active Substance: TRAMADOL HYDROCHLORIDE
     Indication: Pain
     Dosage: 1 TABLET DAILY
  10. CALCIUM CARBONATE\CHOLECALCIFEROL [Concomitant]
     Active Substance: CALCIUM CARBONATE\CHOLECALCIFEROL
     Indication: Osteoporosis
     Dosage: DAILY (1 PER DAY), YEARS1500 MG/400 IU
     Route: 048

REACTIONS (6)
  - Gait inability [Not Recovered/Not Resolved]
  - Fall [Unknown]
  - Spinal fracture [Unknown]
  - Neck pain [Not Recovered/Not Resolved]
  - Pain [Not Recovered/Not Resolved]
  - Arthralgia [Recovered/Resolved]

NARRATIVE: CASE EVENT DATE: 20210801
